FAERS Safety Report 12713134 (Version 2)
Quarter: 2016Q3

REPORT INFORMATION
  Report Type: Report from Study
  Country: US (occurrence: US)
  Receive Date: 20160902
  Receipt Date: 20160923
  Transmission Date: 20161109
  Serious: Yes (Hospitalization)
  Sender: FDA-Public Use
  Company Number: US-TEVA-688242USA

PATIENT
  Age: 48 Year
  Sex: Male

DRUGS (1)
  1. COPAXONE [Suspect]
     Active Substance: GLATIRAMER ACETATE
     Indication: MULTIPLE SCLEROSIS
     Route: 058
     Dates: start: 20150217

REACTIONS (8)
  - Chest pain [Unknown]
  - Wrong technique in product usage process [Unknown]
  - Head discomfort [Recovered/Resolved]
  - Back pain [Unknown]
  - Vascular injury [Unknown]
  - Injection site haemorrhage [Unknown]
  - Injection site haematoma [Unknown]
  - Pain in extremity [Unknown]

NARRATIVE: CASE EVENT DATE: 20160821
